FAERS Safety Report 10496407 (Version 8)
Quarter: 2016Q2

REPORT INFORMATION
  Report Type: Spontaneous
  Country: DE (occurrence: DE)
  Receive Date: 20141003
  Receipt Date: 20160425
  Transmission Date: 20160815
  Serious: Yes (Life-Threatening, Hospitalization, Other)
  Sender: FDA-Public Use
  Company Number: DE-ABBVIE-14K-062-1290286-00

PATIENT
  Age: 22 Year
  Sex: Male

DRUGS (12)
  1. TAZOBAC [Suspect]
     Active Substance: PIPERACILLIN SODIUM\TAZOBACTAM SODIUM
     Indication: PRODUCT USED FOR UNKNOWN INDICATION
     Route: 065
     Dates: start: 2014, end: 2014
  2. PREDNISOLONE. [Suspect]
     Active Substance: PREDNISOLONE
     Indication: COLITIS ULCERATIVE
     Route: 048
     Dates: start: 201408, end: 201409
  3. PANTOZOL [Concomitant]
     Active Substance: PANTOPRAZOLE SODIUM
     Indication: PRODUCT USED FOR UNKNOWN INDICATION
  4. HUMIRA [Suspect]
     Active Substance: ADALIMUMAB
     Indication: COLITIS ULCERATIVE
     Route: 058
     Dates: start: 20140916, end: 20140916
  5. IVABRADINA [Concomitant]
     Indication: PRODUCT USED FOR UNKNOWN INDICATION
  6. RAMIPRIL. [Concomitant]
     Active Substance: RAMIPRIL
     Indication: PRODUCT USED FOR UNKNOWN INDICATION
  7. SPIRONOLACTONE. [Concomitant]
     Active Substance: SPIRONOLACTONE
     Indication: PRODUCT USED FOR UNKNOWN INDICATION
  8. BISOPROLOL [Concomitant]
     Active Substance: BISOPROLOL
     Indication: PRODUCT USED FOR UNKNOWN INDICATION
  9. SALOFALK [Concomitant]
     Active Substance: MESALAMINE
     Indication: COLITIS ULCERATIVE
     Dates: start: 2012
  10. MIRTAZAPINE. [Concomitant]
     Active Substance: MIRTAZAPINE
     Indication: PRODUCT USED FOR UNKNOWN INDICATION
  11. ERYAKNEN [Concomitant]
     Indication: PRODUCT USED FOR UNKNOWN INDICATION
  12. TOREM [Concomitant]
     Active Substance: TORSEMIDE
     Indication: PRODUCT USED FOR UNKNOWN INDICATION
     Dosage: 0.5-0-0

REACTIONS (22)
  - Tricuspid valve incompetence [Recovering/Resolving]
  - Ventricular tachycardia [Recovering/Resolving]
  - Ejection fraction decreased [Recovering/Resolving]
  - Acidosis [Recovering/Resolving]
  - Haemodynamic instability [Recovering/Resolving]
  - Cardiac failure congestive [Recovering/Resolving]
  - Renal failure [Recovering/Resolving]
  - Blood gases abnormal [Unknown]
  - Congestive cardiomyopathy [Unknown]
  - Mitral valve incompetence [Recovering/Resolving]
  - Cardiopulmonary failure [Recovering/Resolving]
  - Arrhythmia [Recovering/Resolving]
  - Cardiomegaly [Unknown]
  - Epstein-Barr virus antibody positive [Unknown]
  - Urine output decreased [Recovering/Resolving]
  - Cardiogenic shock [Recovering/Resolving]
  - Hepatic failure [Recovering/Resolving]
  - Syncope [Recovering/Resolving]
  - Electrocardiogram ST segment elevation [Unknown]
  - Myocarditis [Recovering/Resolving]
  - Drug hypersensitivity [Recovering/Resolving]
  - Blood lactic acid increased [Unknown]

NARRATIVE: CASE EVENT DATE: 2014
